FAERS Safety Report 5520734-5 (Version None)
Quarter: 2007Q4

REPORT INFORMATION
  Report Type: 
  Country: None (occurrence: None)
  Receive Date: 20071115
  Receipt Date: 20071115
  Transmission Date: 20080405
  Serious: No
  Sender: FDA-Public Use
  Company Number: None

PATIENT
  Sex: Female
  Weight: 68.9467 kg

DRUGS (2)
  1. ZICAM NASAL GEL MATRIXX INITATIVES, INC. [Suspect]
     Indication: NASOPHARYNGITIS
     Dosage: ONE SPRAY PER EACH NOSTRIL ONCE NASAL; USED A COUPLE OF TIMES
     Route: 045
  2. ZICAM NASAL GEL MATRIXX INITATIVES, INC. [Suspect]
     Indication: SNEEZING
     Dosage: ONE SPRAY PER EACH NOSTRIL ONCE NASAL; USED A COUPLE OF TIMES
     Route: 045

REACTIONS (7)
  - AGEUSIA [None]
  - ANGER [None]
  - ANOSMIA [None]
  - BURNING SENSATION [None]
  - HEADACHE [None]
  - INFLAMMATION [None]
  - VOMITING [None]
